FAERS Safety Report 6296164-8 (Version None)
Quarter: 2009Q3

REPORT INFORMATION
  Report Type: 
  Country: None (occurrence: None)
  Receive Date: 20090804
  Receipt Date: 20090728
  Transmission Date: 20100115
  Serious: Yes (Other)
  Sender: FDA-Public Use
  Company Number: US-JNJFOC-20090708059

PATIENT
  Age: 43 Year
  Sex: Male

DRUGS (4)
  1. PREZISTA [Suspect]
     Indication: HIV INFECTION
     Route: 048
  2. INTELENCE [Suspect]
     Indication: HIV INFECTION
  3. NORVIR [Concomitant]
     Indication: HIV INFECTION
  4. RALTEGRAVIR [Concomitant]
     Indication: HIV INFECTION

REACTIONS (1)
  - HEPATITIS B [None]
